FAERS Safety Report 16748315 (Version 2)
Quarter: 2019Q4

REPORT INFORMATION
  Report Type: Spontaneous
  Country: US (occurrence: US)
  Receive Date: 20190827
  Receipt Date: 20191101
  Transmission Date: 20200122
  Serious: No
  Sender: FDA-Public Use
  Company Number: US-JNJFOC-20190832330

PATIENT
  Age: 38 Year
  Sex: Male
  Weight: 83.99 kg

DRUGS (1)
  1. MENS ROGAINE EXTRA STRENGTH [Suspect]
     Active Substance: MINOXIDIL
     Indication: ALOPECIA
     Dosage: DROPPER LINE RECOMMENDATION ONCE A DAY
     Route: 061
     Dates: start: 20190814

REACTIONS (3)
  - Underdose [Unknown]
  - Inappropriate schedule of product administration [Unknown]
  - Application site dryness [Recovering/Resolving]

NARRATIVE: CASE EVENT DATE: 20190814
